FAERS Safety Report 21953723 (Version 1)
Quarter: 2023Q1

REPORT INFORMATION
  Report Type: Report from Study
  Country: US (occurrence: US)
  Receive Date: 20230204
  Receipt Date: 20230204
  Transmission Date: 20230417
  Serious: No
  Sender: FDA-Public Use
  Company Number: US-ACORDA-ACO_172213_2022

PATIENT
  Sex: Female

DRUGS (2)
  1. AMPYRA [Suspect]
     Active Substance: DALFAMPRIDINE
     Indication: Gait disturbance
     Dosage: 10 MILLIGRAM, BID
     Route: 048
     Dates: start: 20180828
  2. DALFAMPRIDINE [Suspect]
     Active Substance: DALFAMPRIDINE
     Indication: Multiple sclerosis
     Dosage: UNKNOWN
     Route: 065

REACTIONS (7)
  - Condition aggravated [Unknown]
  - Condition aggravated [Unknown]
  - Muscular weakness [Unknown]
  - Incorrect dose administered [Unknown]
  - Gait disturbance [Unknown]
  - Drug ineffective [Unknown]
  - Asthenia [Unknown]
